FAERS Safety Report 4562657-4 (Version None)
Quarter: 2005Q1

REPORT INFORMATION
  Report Type: 
  Country: None (occurrence: None)
  Receive Date: 20050124
  Receipt Date: 20050112
  Transmission Date: 20050727
  Serious: Yes (Hospitalization, Other)
  Sender: FDA-Public Use
  Company Number: 2004239908JP

PATIENT
  Age: 68 Year
  Sex: Female

DRUGS (10)
  1. CABERGOLINE [Suspect]
     Indication: PARKINSON'S DISEASE
     Dosage: 0.25 MG, ORAL
     Route: 048
     Dates: start: 20040906, end: 20040921
  2. PERGOLIDE MESYLATE [Suspect]
     Indication: PARKINSON'S DISEASE
     Dosage: SEE IMAGE
     Route: 048
     Dates: start: 20040910, end: 20040921
  3. MAPROTILINE [Concomitant]
  4. SINEMET [Concomitant]
  5. AMANTADINE HCL [Concomitant]
  6. MAPROTILINE [Concomitant]
  7. FUROSEMIDE (FUROSEMIDE) [Concomitant]
  8. SPIRONOLACTONE [Concomitant]
  9. ETIZOLAM (ETIZOLAM) [Concomitant]
  10. MAGNESIUM OXIDE (MAGNESIUM OXIDE) [Concomitant]

REACTIONS (14)
  - BLOOD CREATINE PHOSPHOKINASE INCREASED [None]
  - DEPRESSED LEVEL OF CONSCIOUSNESS [None]
  - DRUG INEFFECTIVE [None]
  - DYSPHAGIA [None]
  - FALL [None]
  - GRAND MAL CONVULSION [None]
  - HALLUCINATION [None]
  - HEPATIC FUNCTION ABNORMAL [None]
  - MOBILITY DECREASED [None]
  - MUSCULAR WEAKNESS [None]
  - ORAL INTAKE REDUCED [None]
  - PO2 DECREASED [None]
  - PYREXIA [None]
  - REFUSAL OF TREATMENT BY PATIENT [None]
